FAERS Safety Report 4761046-7 (Version None)
Quarter: 2005Q3

REPORT INFORMATION
  Report Type: 
  Country: None (occurrence: None)
  Receive Date: 20050901
  Receipt Date: 20050819
  Transmission Date: 20060218
  Serious: Yes (Hospitalization)
  Sender: FDA-Public Use
  Company Number: US015856

PATIENT
  Age: 56 Year
  Sex: Female
  Weight: 93.441 kg

DRUGS (3)
  1. GABITRIL [Suspect]
     Indication: TRIGEMINAL NEURALGIA
     Dosage: 4 MG QHS ORAL
     Route: 048
     Dates: start: 20050721, end: 20050727
  2. GABITRIL [Suspect]
     Indication: TRIGEMINAL NEURALGIA
     Dosage: 8 MG QHS ORAL
     Route: 048
     Dates: start: 20050729, end: 20050813
  3. GABITRIL [Suspect]
     Indication: TRIGEMINAL NEURALGIA
     Dosage: 12 MG QHS ORAL
     Route: 048
     Dates: start: 20050814, end: 20050815

REACTIONS (8)
  - CONCUSSION [None]
  - DISTURBANCE IN ATTENTION [None]
  - DRUG INEFFECTIVE [None]
  - FEELING ABNORMAL [None]
  - GRAND MAL CONVULSION [None]
  - HEADACHE [None]
  - SOMNOLENCE [None]
  - TOXICOLOGIC TEST ABNORMAL [None]
